FAERS Safety Report 9515311 (Version 2)
Quarter: 2014Q1

REPORT INFORMATION
  Report Type: Spontaneous
  Country: US (occurrence: None)
  Receive Date: 20130305
  Receipt Date: 20140306
  Transmission Date: 20141002
  Serious: Yes (Other)
  Sender: FDA-Public Use
  Company Number: 163-21880-12103023

PATIENT
  Age: 80 Year
  Sex: Male
  Weight: 83.01 kg

DRUGS (21)
  1. REVLIMID [Suspect]
     Indication: PLASMA CELL MYELOMA
     Dosage: 15 MG, 1 IN 1 D, PO
     Route: 048
     Dates: start: 200911
  2. BACTRIM DS (BACTRIM) [Concomitant]
     Indication: ANTIFUNGAL PROPHYLAXIS
     Dates: start: 20121001
  3. VITAMIN D3 (COLECALCIFEROL) [Concomitant]
  4. VALTREX (VALACICLOVIR HYDROCHLORIDE) [Concomitant]
  5. VITAMIN C (ASCORBIC ACID) [Concomitant]
  6. MULTIVITAMIN (MULTIVITAMINS) [Concomitant]
  7. VALTREX (VALACICLOVIR HYDROCHLORIDE) [Concomitant]
  8. LISINOPRIL (LISINOPRIL) [Concomitant]
  9. OMEGA 3 FISH OIL [Concomitant]
  10. EYE HEALTH (OTHER THERAPEUTIC PRODUCTS) [Concomitant]
  11. MULTIVITAMIN (MULTIVITAMIN) [Concomitant]
  12. CALCIUM (CALCIUM) [Concomitant]
  13. FLAGYL (METRONIDAZOLE) [Concomitant]
  14. DEXAMETHASONE [Concomitant]
  15. LISINOPRIL [Concomitant]
  16. METFORMIN [Concomitant]
  17. EYE HEALTH [Concomitant]
  18. ATENOLOL [Concomitant]
  19. CALCIUM [Concomitant]
  20. VELCADE (BORTEZOMIB) [Concomitant]
  21. DEXAMETHASONE [Concomitant]

REACTIONS (2)
  - Clostridium difficile infection [None]
  - Clostridium difficile colitis [None]
